FAERS Safety Report 16130350 (Version 1)
Quarter: 2019Q1

REPORT INFORMATION
  Report Type: Spontaneous
  Country: US (occurrence: US)
  Receive Date: 20190328
  Receipt Date: 20190328
  Transmission Date: 20190418
  Serious: No
  Sender: FDA-Public Use
  Company Number: US-MMM-XLIFRM1G

PATIENT
  Age: 38 Year
  Sex: Female

DRUGS (3)
  1. PRAZOSIN. [Suspect]
     Active Substance: PRAZOSIN
     Dosage: UNK( EXTRA DOSE)
     Route: 065
     Dates: start: 20190117
  2. PRAZOSIN. [Suspect]
     Active Substance: PRAZOSIN
     Indication: SLEEP TERROR
     Dosage: UNK
     Route: 065
  3. SUBLOCADE [Suspect]
     Active Substance: BUPRENORPHINE
     Indication: DRUG DEPENDENCE
     Dosage: 300MG QMO (TWO INJECTIONS)
     Route: 058
     Dates: start: 2018

REACTIONS (3)
  - Rash [Recovered/Resolved]
  - Extra dose administered [Recovered/Resolved]
  - Hypertension [Not Recovered/Not Resolved]

NARRATIVE: CASE EVENT DATE: 20190115
